FAERS Safety Report 6317430-3 (Version None)
Quarter: 2009Q3

REPORT INFORMATION
  Report Type: 
  Country: None (occurrence: None)
  Receive Date: 20090821
  Receipt Date: 20090810
  Transmission Date: 20100115
  Serious: Yes (Other)
  Sender: FDA-Public Use
  Company Number: US-RANBAXY-2009RR-26425

PATIENT
  Age: 51 Year
  Sex: Male

DRUGS (2)
  1. OLANZAPINE [Suspect]
     Dosage: 100 MG, SINGLE
     Route: 048
  2. GABAPENTIN [Suspect]
     Route: 048

REACTIONS (2)
  - DRUG INTERACTION [None]
  - PRIAPISM [None]
